FAERS Safety Report 5847397-3 (Version None)
Quarter: 2008Q3

REPORT INFORMATION
  Report Type: 
  Country: None (occurrence: None)
  Receive Date: 20080815
  Receipt Date: 20080811
  Transmission Date: 20090109
  Serious: Yes (Death)
  Sender: FDA-Public Use
  Company Number: JP-WYE-H05579008

PATIENT
  Sex: Female
  Weight: 38 kg

DRUGS (7)
  1. ANCARON [Suspect]
     Indication: VENTRICULAR TACHYCARDIA
     Dosage: 10 ML/MIN
     Route: 042
     Dates: start: 20080111, end: 20080111
  2. ANCARON [Suspect]
     Dosage: 33 ML/HR
     Route: 042
     Dates: start: 20080111, end: 20080112
  3. ANCARON [Suspect]
     Dosage: 17 ML/HR
     Route: 042
     Dates: start: 20080112, end: 20080114
  4. MILRILA [Concomitant]
     Indication: VENTRICULAR TACHYCARDIA
     Dosage: 7.2 MG - 14.4 MG QD
     Route: 042
     Dates: start: 20080111, end: 20080113
  5. HANP [Concomitant]
     Indication: VENTRICULAR TACHYCARDIA
     Dosage: 2.16 MG - 3.6 MG QD
     Route: 042
     Dates: start: 20080111, end: 20080114
  6. CATABON [Concomitant]
     Indication: VENTRICULAR TACHYCARDIA
     Dosage: 288 MG - 504 MG QD
     Route: 042
     Dates: start: 20080111, end: 20080114
  7. NORADRENALINE [Concomitant]
     Indication: VENTRICULAR TACHYCARDIA
     Dosage: 24 MG - 192 MG QD
     Route: 042
     Dates: start: 20080111, end: 20080114

REACTIONS (2)
  - HEPATIC FAILURE [None]
  - RENAL FAILURE [None]
